FAERS Safety Report 6338759-9 (Version None)
Quarter: 2009Q3

REPORT INFORMATION
  Report Type: 
  Country: None (occurrence: None)
  Receive Date: 20090831
  Receipt Date: 20090319
  Transmission Date: 20100115
  Serious: No
  Sender: FDA-Public Use
  Company Number: APP200900147

PATIENT
  Age: 23 Year
  Sex: Female

DRUGS (1)
  1. SENSORCAINE [Suspect]
     Indication: SPINAL ANAESTHESIA
     Dosage: 2 ML, MIXED W/COMBINATION OF UNK ANESTHETICS, INTRATHECAL
     Route: 037
     Dates: start: 20090313, end: 20090313

REACTIONS (1)
  - DRUG INEFFECTIVE [None]
